FAERS Safety Report 25570233 (Version 1)
Quarter: 2025Q3

REPORT INFORMATION
  Report Type: Spontaneous
  Country: EU (occurrence: EU)
  Receive Date: 20250717
  Receipt Date: 20250717
  Transmission Date: 20251020
  Serious: Yes (Other)
  Sender: CELLTRION
  Company Number: EU-JNJFOC-20250324165

PATIENT

DRUGS (1)
  1. INFLIXIMAB [Suspect]
     Active Substance: INFLIXIMAB
     Indication: Crohn^s disease
     Route: 041

REACTIONS (4)
  - Facial paralysis [Recovered/Resolved]
  - VIth nerve paralysis [Recovered/Resolved]
  - Trigeminal palsy [Recovered/Resolved]
  - Meningitis aseptic [Recovered/Resolved]
